FAERS Safety Report 23774286 (Version 1)
Quarter: 2024Q2

REPORT INFORMATION
  Report Type: Spontaneous
  Country: US (occurrence: US)
  Receive Date: 20240423
  Receipt Date: 20240423
  Transmission Date: 20240715
  Serious: Yes (Hospitalization)
  Sender: FDA-Public Use
  Company Number: US-BRISTOL-MYERS SQUIBB COMPANY-2024-061188

PATIENT
  Age: 87 Year
  Sex: Female

DRUGS (24)
  1. REVLIMID [Suspect]
     Active Substance: LENALIDOMIDE
     Indication: Myelodysplastic syndrome
     Route: 048
     Dates: start: 20240127, end: 20240402
  2. FERROUS SULFATE [Concomitant]
     Active Substance: FERROUS SULFATE
     Dosage: 325 MG (5 GR)
  3. FIBERCON [Concomitant]
     Active Substance: CALCIUM POLYCARBOPHIL
  4. FLUTICASONE [Concomitant]
     Active Substance: FLUTICASONE
     Dosage: NASAL SP (120) RX
  5. FUROSEMIDE [Concomitant]
     Active Substance: FUROSEMIDE
  6. GABAPENTIN [Concomitant]
     Active Substance: GABAPENTIN
  7. LEVOTHYROXINE [Concomitant]
     Active Substance: LEVOTHYROXINE\LEVOTHYROXINE SODIUM
  8. LEXAPRO [Concomitant]
     Active Substance: ESCITALOPRAM OXALATE
  9. VITAMINS [Concomitant]
     Active Substance: VITAMINS
  10. NITROSTAT [Concomitant]
     Active Substance: NITROGLYCERIN
     Dosage: (1/150 GR) SUBLT 100 S
  11. SODIUM CHLORIDE [Concomitant]
     Active Substance: SODIUM CHLORIDE
  12. OMEPRAZOLE [Concomitant]
     Active Substance: OMEPRAZOLE
  13. ONDANSETRON [Concomitant]
     Active Substance: ONDANSETRON
  14. ONDANSETRON [Concomitant]
     Active Substance: ONDANSETRON
  15. POTASSIUM CHLORIDE [Concomitant]
     Active Substance: POTASSIUM CHLORIDE
  16. ASPIRIN [Concomitant]
     Active Substance: ASPIRIN
  17. BACLOFEN [Concomitant]
     Active Substance: BACLOFEN
  18. COREG [Concomitant]
     Active Substance: CARVEDILOL
  19. CALCIUM CARBONATE [Concomitant]
     Active Substance: CALCIUM CARBONATE
  20. VENTOLIN HFA [Concomitant]
     Active Substance: ALBUTEROL SULFATE
  21. VITAMIN C [Concomitant]
     Active Substance: ASCORBIC ACID
  22. VIT D [VITAMIN D NOS] [Concomitant]
  23. ARANESP [Concomitant]
     Active Substance: DARBEPOETIN ALFA
  24. COLACE [Concomitant]
     Active Substance: DOCUSATE SODIUM

REACTIONS (1)
  - Cholelithiasis [Unknown]

NARRATIVE: CASE EVENT DATE: 20240302
